FAERS Safety Report 5619881-9 (Version None)
Quarter: 2008Q1

REPORT INFORMATION
  Report Type: 
  Country: None (occurrence: None)
  Receive Date: 20080208
  Receipt Date: 20070803
  Transmission Date: 20080703
  Serious: No
  Sender: FDA-Public Use
  Company Number: US-ABBOTT-07P-163-0377285-00

PATIENT
  Age: 83 Year
  Sex: Male

DRUGS (2)
  1. VICODIN [Suspect]
     Indication: PAIN
  2. PREGABALIN [Suspect]
     Indication: NEUROPATHY PERIPHERAL
     Dates: end: 20070401

REACTIONS (2)
  - NONSPECIFIC REACTION [None]
  - OEDEMA PERIPHERAL [None]
